FAERS Safety Report 25538633 (Version 2)
Quarter: 2025Q3

REPORT INFORMATION
  Report Type: Spontaneous
  Country: US (occurrence: US)
  Receive Date: 20250710
  Receipt Date: 20250912
  Transmission Date: 20251021
  Serious: Yes (Other)
  Sender: AUROBINDO
  Company Number: US-AUROBINDO-AUR-APL-2025-021110

PATIENT
  Age: 20 Month
  Sex: Male
  Weight: 10.886 kg

DRUGS (13)
  1. AMOXICILLIN [Suspect]
     Active Substance: AMOXICILLIN
     Indication: Ear infection
     Route: 065
     Dates: start: 20250210, end: 20250220
  2. MOTRIN [Concomitant]
     Active Substance: IBUPROFEN
     Indication: Product used for unknown indication
     Route: 048
     Dates: start: 20250221
  3. SODIUM CHLORIDE [Concomitant]
     Active Substance: SODIUM CHLORIDE
     Indication: Product used for unknown indication
     Route: 040
  4. DEXTROSE [Concomitant]
     Active Substance: DEXTROSE MONOHYDRATE
     Indication: Product used for unknown indication
     Route: 040
     Dates: start: 20250221
  5. LIDOCAINE [Concomitant]
     Active Substance: LIDOCAINE
     Indication: Product used for unknown indication
     Route: 023
     Dates: start: 20250221
  6. LIDOCAINE [Concomitant]
     Active Substance: LIDOCAINE
     Route: 023
     Dates: start: 20250224
  7. TYLENOL [Concomitant]
     Active Substance: ACETAMINOPHEN
     Indication: Product used for unknown indication
     Route: 048
     Dates: start: 20250221
  8. CEFDINIR [Concomitant]
     Active Substance: CEFDINIR
     Indication: Product used for unknown indication
     Route: 065
  9. DECADRON [Concomitant]
     Active Substance: DEXAMETHASONE
     Indication: Product used for unknown indication
     Route: 042
     Dates: start: 20250224
  10. TORADOL [Concomitant]
     Active Substance: KETOROLAC TROMETHAMINE
     Indication: Product used for unknown indication
     Route: 042
     Dates: start: 20250224
  11. HYDROXYZINE [Concomitant]
     Active Substance: HYDROXYZINE HYDROCHLORIDE
     Indication: Product used for unknown indication
     Route: 065
     Dates: start: 20250220
  12. ZYRTEC [Concomitant]
     Active Substance: CETIRIZINE HYDROCHLORIDE
     Indication: Product used for unknown indication
     Route: 065
     Dates: start: 20250220
  13. FLONASE [Concomitant]
     Active Substance: FLUTICASONE PROPIONATE
     Indication: Product used for unknown indication
     Route: 065
     Dates: start: 20250220

REACTIONS (8)
  - Erythema multiforme [Unknown]
  - Pyrexia [Unknown]
  - Hypersensitivity [Unknown]
  - Adenovirus infection [Unknown]
  - Dehydration [Unknown]
  - Hypoglycaemia [Unknown]
  - Oedema [Unknown]
  - Serum sickness [Unknown]

NARRATIVE: CASE EVENT DATE: 20250218
